FAERS Safety Report 5086502-6 (Version None)
Quarter: 2006Q3

REPORT INFORMATION
  Report Type: 
  Country: None (occurrence: None)
  Receive Date: 20060818
  Receipt Date: 20060804
  Transmission Date: 20061208
  Serious: Yes (Other)
  Sender: FDA-Public Use
  Company Number: 2006-BP-08993RO

PATIENT
  Age: 43 Year
  Sex: Female

DRUGS (3)
  1. DEXAMETHASONE TAB [Suspect]
     Indication: NEUROCYSTICERCOSIS
  2. ALBENDAZOLE (ALBENDAZOLE) [Suspect]
     Indication: NEUROCYSTICERCOSIS
  3. CLOBAZAM (CLOBAZAM) [Suspect]
     Indication: NEUROCYSTICERCOSIS

REACTIONS (3)
  - DISEASE PROGRESSION [None]
  - HEADACHE [None]
  - NEUROCYSTICERCOSIS [None]
